FAERS Safety Report 5121285-2 (Version None)
Quarter: 2006Q4

REPORT INFORMATION
  Report Type: 
  Country: None (occurrence: None)
  Receive Date: 20061002
  Receipt Date: 20060920
  Transmission Date: 20070319
  Serious: Yes (Disabling, Other)
  Sender: FDA-Public Use
  Company Number: 2006113066

PATIENT
  Sex: Female
  Weight: 52.6173 kg

DRUGS (5)
  1. LIPITOR [Suspect]
     Indication: BLOOD CHOLESTEROL INCREASED
     Dosage: 20 MG (20 MG, 1 IN 1 D); ORAL
     Route: 048
     Dates: end: 20060816
  2. MINIPRESS [Concomitant]
  3. ALL OTHER THERAPEUTIC PRODUCTS [Concomitant]
  4. ZANTAC [Concomitant]
  5. ANTIBIOTICS [Concomitant]

REACTIONS (15)
  - ABDOMINAL DISTENSION [None]
  - ABDOMINAL PAIN UPPER [None]
  - BRONCHITIS [None]
  - DIARRHOEA [None]
  - DYSPEPSIA [None]
  - FATIGUE [None]
  - FEELING ABNORMAL [None]
  - GAIT DISTURBANCE [None]
  - GALLBLADDER DISORDER [None]
  - GALLBLADDER OPERATION [None]
  - GASTRIC DISORDER [None]
  - HEADACHE [None]
  - LIVER DISORDER [None]
  - ORAL INTAKE REDUCED [None]
  - PARAESTHESIA [None]
